FAERS Safety Report 18973038 (Version 1)
Quarter: 2021Q1

REPORT INFORMATION
  Report Type: Other
  Country: US (occurrence: US)
  Receive Date: 20210305
  Receipt Date: 20210305
  Transmission Date: 20210420
  Serious: Yes (Hospitalization)
  Sender: FDA-Public Use
  Company Number: US-ROCHE-2776361

PATIENT
  Sex: Male

DRUGS (14)
  1. CYANOCOBALAMIN. [Concomitant]
     Active Substance: CYANOCOBALAMIN
     Route: 048
  2. MOTRIN [Concomitant]
     Active Substance: IBUPROFEN
     Route: 048
  3. OCREVUS [Suspect]
     Active Substance: OCRELIZUMAB
     Indication: MULTIPLE SCLEROSIS
     Dosage: INFUSE 600MG INTRAVENOUSLY EVERY 6 MONTH(S)
     Route: 042
  4. PRILOSEC [Concomitant]
     Active Substance: OMEPRAZOLE MAGNESIUM
     Route: 048
  5. ASCORBIC ACID. [Concomitant]
     Active Substance: ASCORBIC ACID
     Route: 048
  6. OCREVUS [Suspect]
     Active Substance: OCRELIZUMAB
     Route: 042
  7. LIORESAL [Concomitant]
     Active Substance: BACLOFEN
     Route: 048
  8. DILANTIN [Concomitant]
     Active Substance: PHENYTOIN
     Route: 048
  9. MYSOLINE [Concomitant]
     Active Substance: PRIMIDONE
     Route: 048
  10. ZOSYN [Concomitant]
     Active Substance: PIPERACILLIN SODIUM\TAZOBACTAM SODIUM
     Route: 042
  11. ASPIRIN. [Concomitant]
     Active Substance: ASPIRIN
     Dosage: CHEWABLE TABLET
     Route: 048
  12. CRANBERRY. [Concomitant]
     Active Substance: CRANBERRY
     Route: 048
  13. PEPCID [Concomitant]
     Active Substance: FAMOTIDINE
     Route: 048
  14. GENTAMICIN SULFATE. [Concomitant]
     Active Substance: GENTAMICIN SULFATE
     Route: 042

REACTIONS (2)
  - Urinary tract infection [Unknown]
  - Anal incontinence [Unknown]
